FAERS Safety Report 7102683 (Version 2)
Quarter: 2012Q4

REPORT INFORMATION
  Report Type: 
  Country: DE (occurrence: DE)
  Receive Date: 20090901
  Receipt Date: 20121008
  Transmission Date: 20130627
  Serious: Yes (Other)
  Sender: FDA-Public Use
  Company Number: DE-AMGEN-UK357584

PATIENT
  Age: 47 Year
  Sex: Female
  Weight: 65 kg

DRUGS (3)
  1. NPLATE [Suspect]
     Indication: IDIOPATHIC THROMBOCYTOPENIC PURPURA
     Dosage: 1 mug/kg, qwk
     Route: 058
     Dates: start: 20090520
  2. NPLATE [Suspect]
     Dosage: 5 mug/kg, UNK
     Dates: start: 2009
  3. OESTROGEN [Concomitant]

REACTIONS (4)
  - Post procedural haemorrhage [Recovered/Resolved]
  - Platelet disorder [Unknown]
  - Bleeding time prolonged [Unknown]
  - Platelet aggregation abnormal [Unknown]
